FAERS Safety Report 7902957-0 (Version None)
Quarter: 2011Q4

REPORT INFORMATION
  Report Type: 
  Country: None (occurrence: None)
  Receive Date: 20111107
  Receipt Date: 20111101
  Transmission Date: 20120403
  Serious: Yes (Hospitalization, Other)
  Sender: FDA-Public Use
  Company Number: AUR-APL-2011-05673

PATIENT
  Age: 2 Year
  Sex: Female

DRUGS (4)
  1. INTRAVENOUS FLUIDS (BARIUM SULFATE) [Concomitant]
  2. ANTIPYRETICS (OTHER ANALGESICS AND ANTIPYRETICS) [Concomitant]
  3. COUGH SUPPRESSANT (COUGH SYRUP) [Concomitant]
  4. PIPERACILLIN AND TAZOBACTAM [Suspect]
     Indication: BRONCHOPNEUMONIA
     Dosage: 300 MG/KG, 1 D, INTRAVENOUS
     Route: 042

REACTIONS (7)
  - ELECTROCARDIOGRAM NORMAL [None]
  - BRADYCARDIA [None]
  - USE OF ACCESSORY RESPIRATORY MUSCLES [None]
  - ELECTROCARDIOGRAM ST SEGMENT DEPRESSION [None]
  - METABOLIC ALKALOSIS [None]
  - RESPIRATORY RATE INCREASED [None]
  - BLOOD SODIUM DECREASED [None]
